FAERS Safety Report 10550380 (Version 1)
Quarter: 2014Q4

REPORT INFORMATION
  Report Type: Spontaneous
  Country: US (occurrence: US)
  Receive Date: 20141029
  Receipt Date: 20141029
  Transmission Date: 20150529
  Serious: Yes (Hospitalization)
  Sender: FDA-Public Use
  Company Number: US-AMGEN-USASP2014082111

PATIENT
  Age: 43 Year
  Sex: Male

DRUGS (3)
  1. ARANESP [Suspect]
     Active Substance: DARBEPOETIN ALFA
     Indication: PRODUCT USED FOR UNKNOWN INDICATION
     Dosage: UNK
     Route: 065
     Dates: start: 201410
  2. TAXOTERE [Concomitant]
     Active Substance: DOCETAXEL
  3. GEMZAR [Concomitant]
     Active Substance: GEMCITABINE HYDROCHLORIDE

REACTIONS (5)
  - Seizure [Unknown]
  - Hypotension [Unknown]
  - Tongue biting [Unknown]
  - Blood count abnormal [Unknown]
  - Laceration [Unknown]

NARRATIVE: CASE EVENT DATE: 201410
